FAERS Safety Report 11349738 (Version 1)
Quarter: 2015Q3

REPORT INFORMATION
  Report Type: Spontaneous
  Country: CA (occurrence: CA)
  Receive Date: 20150807
  Receipt Date: 20150807
  Transmission Date: 20151125
  Serious: Yes (Other)
  Sender: FDA-Public Use
  Company Number: CA-TEVA-584477ACC

PATIENT
  Age: 75 Year
  Sex: Male
  Weight: 87.62 kg

DRUGS (1)
  1. TAMSULOSIN CR [Suspect]
     Active Substance: TAMSULOSIN
     Indication: PRODUCT USED FOR UNKNOWN INDICATION
     Dosage: .4 MILLIGRAM DAILY;
     Route: 065

REACTIONS (3)
  - Urinary retention [Unknown]
  - Product substitution issue [Unknown]
  - Pollakiuria [Unknown]
